FAERS Safety Report 7078075-3 (Version None)
Quarter: 2010Q4

REPORT INFORMATION
  Report Type: 
  Country: None (occurrence: None)
  Receive Date: 20101102
  Receipt Date: 20101025
  Transmission Date: 20110411
  Serious: No
  Sender: FDA-Public Use
  Company Number: US-BIOGENIDEC-2010BI037306

PATIENT
  Age: 46 Year
  Sex: Female

DRUGS (1)
  1. TYSABRI [Suspect]
     Indication: MULTIPLE SCLEROSIS
     Route: 042
     Dates: start: 20081208

REACTIONS (10)
  - CANDIDIASIS [None]
  - DYSPHONIA [None]
  - DYSURIA [None]
  - FUNGAL INFECTION [None]
  - GASTRITIS [None]
  - GASTROOESOPHAGEAL REFLUX DISEASE [None]
  - OESOPHAGEAL STENOSIS [None]
  - ORAL CANDIDIASIS [None]
  - PELVIC INFLAMMATORY DISEASE [None]
  - WHITE BLOOD CELL COUNT INCREASED [None]
